FAERS Safety Report 13608921 (Version 3)
Quarter: 2017Q3

REPORT INFORMATION
  Report Type: Spontaneous
  Country: ES (occurrence: ES)
  Receive Date: 20170602
  Receipt Date: 20170712
  Transmission Date: 20171127
  Serious: Yes (Death, Life-Threatening, Other)
  Sender: FDA-Public Use
  Company Number: ES-AMGEN-ESPSP2016133558

PATIENT
  Age: 80 Year
  Sex: Female
  Weight: 50 kg

DRUGS (9)
  1. PREDNISONE. [Concomitant]
     Active Substance: PREDNISONE
     Indication: ALLERGY PROPHYLAXIS
     Dosage: UNK
  2. RANITIDINE. [Concomitant]
     Active Substance: RANITIDINE
     Indication: ALLERGY PROPHYLAXIS
     Dosage: UNK
  3. NIVESTIM [Concomitant]
     Active Substance: FILGRASTIM
     Indication: NEUTROPENIA
     Dosage: UNK
  4. NEUPOGEN [Suspect]
     Active Substance: FILGRASTIM
     Indication: NEUTROPENIA
     Dosage: 48 MILLION UNIT, QMO
     Route: 058
     Dates: start: 20150118
  5. AZACITIDINE. [Concomitant]
     Active Substance: AZACITIDINE
     Indication: MYELODYSPLASTIC SYNDROME
     Dosage: UNK
  6. AAS [Concomitant]
     Active Substance: ASPIRIN
     Indication: ALLERGY PROPHYLAXIS
     Dosage: 500 MG, UNK
  7. DEXCHLORPHENIRAMINE [Concomitant]
     Active Substance: DEXCHLORPHENIRAMINE
     Indication: ALLERGY PROPHYLAXIS
     Dosage: UNK
  8. SINGULAIR [Concomitant]
     Active Substance: MONTELUKAST SODIUM
     Indication: ALLERGY PROPHYLAXIS
     Dosage: UNK
  9. SALINE [Concomitant]
     Active Substance: SODIUM CHLORIDE
     Indication: ALLERGY PROPHYLAXIS
     Dosage: UNK

REACTIONS (2)
  - Myelodysplastic syndrome [Fatal]
  - Drug hypersensitivity [Recovered/Resolved]

NARRATIVE: CASE EVENT DATE: 20150606
